FAERS Safety Report 7503478-X (Version None)
Quarter: 2011Q2

REPORT INFORMATION
  Report Type: 
  Country: None (occurrence: None)
  Receive Date: 20110525
  Receipt Date: 20110517
  Transmission Date: 20111010
  Serious: Yes (Death, Hospitalization, Other)
  Sender: FDA-Public Use
  Company Number: US-ROCHE-733624

PATIENT
  Age: 67 Year
  Sex: Female
  Weight: 123.9 kg

DRUGS (18)
  1. VALCYTE [Concomitant]
  2. ADVAIR DISKUS 100/50 [Concomitant]
  3. HYDRALAZINE HCL [Concomitant]
  4. CELLCEPT [Suspect]
     Route: 048
     Dates: start: 20080711, end: 20090914
  5. CYCLOSPORINE [Suspect]
     Route: 048
     Dates: start: 20080624, end: 20091124
  6. FLUNISOLIDE [Concomitant]
  7. LEVOTHYROXINE SODIUM [Concomitant]
  8. CELLCEPT [Suspect]
     Route: 048
     Dates: start: 20091112, end: 20091118
  9. CYCLOSPORINE [Suspect]
     Route: 048
     Dates: start: 20080624, end: 20091124
  10. ISOSORBIDE DINITRATE [Concomitant]
  11. METOPROLOL TARTRATE [Concomitant]
  12. MOXIFLOXACIN [Concomitant]
     Dates: start: 20091113
  13. OMEPRAZOLE [Concomitant]
  14. SODIUM BICARBONATE [Concomitant]
  15. CELLCEPT [Suspect]
     Route: 048
     Dates: start: 20090915, end: 20091111
  16. SPIRIVA [Concomitant]
  17. HEPARIN [Concomitant]
  18. PREDNISONE [Suspect]
     Route: 048
     Dates: start: 20080721, end: 20091124

REACTIONS (6)
  - ATRIAL FLUTTER [None]
  - RENAL FAILURE ACUTE [None]
  - SEPSIS [None]
  - LIVER FUNCTION TEST ABNORMAL [None]
  - DIABETIC KETOACIDOSIS [None]
  - MENTAL STATUS CHANGES [None]
